FAERS Safety Report 25523364 (Version 1)
Quarter: 2025Q3

REPORT INFORMATION
  Report Type: Spontaneous
  Country: GB (occurrence: GB)
  Receive Date: 20250707
  Receipt Date: 20250707
  Transmission Date: 20251021
  Serious: Yes (Other)
  Sender: AUROBINDO
  Company Number: GB-MHRA-TPP39560383C8575819YC1750515952072

PATIENT
  Age: 54 Year
  Sex: Male
  Weight: 72 kg

DRUGS (11)
  1. IBUPROFEN [Suspect]
     Active Substance: IBUPROFEN
     Indication: Product used for unknown indication
     Route: 065
  2. AMOXICILLIN [Concomitant]
     Active Substance: AMOXICILLIN
     Indication: Ill-defined disorder
     Dosage: 01 DOSAGE FORM, 3 TIMES A DAY
     Route: 065
     Dates: start: 20250326, end: 20250331
  3. CARBOXYMETHYLCELLULOSE SODIUM [Concomitant]
     Active Substance: CARBOXYMETHYLCELLULOSE SODIUM
     Indication: Ill-defined disorder
     Route: 065
     Dates: start: 20250527, end: 20250528
  4. CLARITHROMYCIN [Concomitant]
     Active Substance: CLARITHROMYCIN
     Indication: Ill-defined disorder
     Route: 065
     Dates: start: 20250621
  5. FLUCLOXACILLIN [Concomitant]
     Active Substance: FLUCLOXACILLIN
     Indication: Ill-defined disorder
     Dosage: 01 DOSAGE FORM, FOUR TIMES/DAY
     Route: 065
     Dates: start: 20250417, end: 20250424
  6. METHADONE [Concomitant]
     Active Substance: METHADONE HYDROCHLORIDE
     Indication: Ill-defined disorder
     Route: 065
     Dates: start: 20250604
  7. NICOTINELL [Concomitant]
     Active Substance: NICOTINE
     Indication: Ill-defined disorder
     Route: 065
     Dates: start: 20250613, end: 20250620
  8. PREGABALIN [Concomitant]
     Active Substance: PREGABALIN
     Indication: Ill-defined disorder
     Route: 065
     Dates: start: 20250115
  9. Prontosan [Concomitant]
     Indication: Ill-defined disorder
     Route: 065
     Dates: start: 20241004
  10. Zetuvit plus [Concomitant]
     Indication: Ill-defined disorder
     Route: 065
     Dates: start: 20250402, end: 20250416
  11. Zetuvit plus [Concomitant]
     Indication: Ill-defined disorder
     Route: 065
     Dates: start: 20250527, end: 20250528

REACTIONS (1)
  - Anaphylactic reaction [Recovered/Resolved]
